FAERS Safety Report 9549706 (Version 3)
Quarter: 2014Q2

REPORT INFORMATION
  Report Type: Report from Study
  Country: BE (occurrence: BE)
  Receive Date: 20130924
  Receipt Date: 20140417
  Transmission Date: 20141212
  Serious: Yes (Hospitalization)
  Sender: FDA-Public Use
  Company Number: BE-CELGENEUS-013-C4047-13092714

PATIENT
  Age: 71 Year
  Sex: Male
  Weight: 101 kg

DRUGS (3)
  1. CC-4047 [Suspect]
     Indication: PLASMA CELL MYELOMA
     Dosage: 4 MILLIGRAM
     Route: 048
     Dates: start: 20130911, end: 20130918
  2. DEXAMETHASONE [Suspect]
     Indication: PLASMA CELL MYELOMA
     Route: 065
     Dates: start: 20130911, end: 20130918
  3. ANTI-THROMBOTIC AGENT [Concomitant]
     Indication: THROMBOSIS PROPHYLAXIS
     Route: 065

REACTIONS (3)
  - Fall [Recovered/Resolved]
  - Renal failure [Not Recovered/Not Resolved]
  - Crush syndrome [Recovered/Resolved]
